FAERS Safety Report 7243584-0 (Version None)
Quarter: 2011Q1

REPORT INFORMATION
  Report Type: 
  Country: None (occurrence: None)
  Receive Date: 20110125
  Receipt Date: 20110112
  Transmission Date: 20110831
  Serious: Yes (Disabling)
  Sender: FDA-Public Use
  Company Number: PHHY2011PT02248

PATIENT
  Sex: Male

DRUGS (1)
  1. ACLASTA [Suspect]
     Route: 042

REACTIONS (3)
  - SEXUAL DYSFUNCTION [None]
  - LIBIDO DECREASED [None]
  - ERECTILE DYSFUNCTION [None]
